FAERS Safety Report 15506716 (Version 1)
Quarter: 2018Q4

REPORT INFORMATION
  Report Type: Spontaneous
  Country: GB (occurrence: GB)
  Receive Date: 20181016
  Receipt Date: 20181016
  Transmission Date: 20190205
  Serious: Yes (Hospitalization, Other)
  Sender: FDA-Public Use
  Company Number: GB-PFIZER INC-2018416001

PATIENT
  Age: 74 Year
  Sex: Female

DRUGS (5)
  1. DEMECLOCYCLINE [Suspect]
     Active Substance: DEMECLOCYCLINE
     Dosage: 600 MG, 1X/DAY
  2. FOLIC ACID. [Concomitant]
     Active Substance: FOLIC ACID
     Dosage: 5 MG, 1X/DAY
  3. QUININE [Concomitant]
     Active Substance: QUININE
     Dosage: 300 MG, 1X/DAY (AT NIGHT)
  4. AMLODIPINE [Concomitant]
     Active Substance: AMLODIPINE BESYLATE
     Dosage: 5 MG, 1X/DAY
  5. ATORVASTATIN CALCIUM. [Suspect]
     Active Substance: ATORVASTATIN CALCIUM
     Dosage: 80 MG, 1X/DAY

REACTIONS (2)
  - Liver function test abnormal [Unknown]
  - Acute kidney injury [Unknown]
